FAERS Safety Report 21410403 (Version 4)
Quarter: 2022Q4

REPORT INFORMATION
  Report Type: Report from Study
  Country: SE (occurrence: SE)
  Receive Date: 20221005
  Receipt Date: 20221025
  Transmission Date: 20230113
  Serious: Yes (Hospitalization)
  Sender: FDA-Public Use
  Company Number: SE-ABBVIE-4138996

PATIENT
  Sex: Female
  Weight: 45.7 kg

DRUGS (4)
  1. CARBIDOPA\LEVODOPA [Suspect]
     Active Substance: CARBIDOPA\LEVODOPA
     Indication: Parkinson^s disease
     Dosage: CURRENT DOSAGE: CONTINUOUS DOSE: 3.7 ML/H AND EXTRA DOSE: 1.5ML
     Route: 050
     Dates: start: 20221014
  2. CARBIDOPA\LEVODOPA [Suspect]
     Active Substance: CARBIDOPA\LEVODOPA
     Dosage: THERAPY DURATION: REMAINS AT 16H
     Route: 050
     Dates: start: 20220829
  3. CARBIDOPA\LEVODOPA [Suspect]
     Active Substance: CARBIDOPA\LEVODOPA
     Dosage: THERAPY DURATION: REMAINS AT 16H
     Route: 050
     Dates: start: 20220829
  4. CARBIDOPA\LEVODOPA [Suspect]
     Active Substance: CARBIDOPA\LEVODOPA
     Dosage: MORNING DOSE INCREASED FROM 6 ML TO 9 ML?CONTINUOUS DOSE: 3.7 ML/H AND EXTRA DOSE: 1.5ML
     Route: 050
     Dates: start: 20221014

REACTIONS (4)
  - Pain in extremity [Not Recovered/Not Resolved]
  - Anxiety [Unknown]
  - Pain in extremity [Not Recovered/Not Resolved]
  - Anxiety [Unknown]
